FAERS Safety Report 20251935 (Version 1)
Quarter: 2021Q4

REPORT INFORMATION
  Report Type: Spontaneous
  Country: US (occurrence: US)
  Receive Date: 20211229
  Receipt Date: 20211229
  Transmission Date: 20220303
  Serious: No
  Sender: FDA-Public Use
  Company Number: US-CELLTRION INC.-2021US015577

PATIENT

DRUGS (3)
  1. TRUXIMA [Suspect]
     Active Substance: RITUXIMAB-ABBS
     Indication: Glomerulonephritis membranous
     Dosage: 1000 MG EVERY 2 WEEKS, DOSE: 10 MG/ML
     Dates: start: 20210713
  2. TRUXIMA [Suspect]
     Active Substance: RITUXIMAB-ABBS
     Dosage: 1000 MG EVERY 2 WEEKS, DOSE: 10 MG/ML
     Dates: start: 20210727
  3. TRUXIMA [Suspect]
     Active Substance: RITUXIMAB-ABBS
     Dosage: 1000 MG EVERY 2 WEEKS, DOSE: 10 MG/ML
     Dates: start: 20211110

REACTIONS (1)
  - Off label use [Unknown]
